FAERS Safety Report 9397685 (Version 1)
Quarter: 2013Q3

REPORT INFORMATION
  Report Type: Spontaneous
  Country: US (occurrence: US)
  Receive Date: 20130712
  Receipt Date: 20130712
  Transmission Date: 20140515
  Serious: Yes (Death, Life-Threatening)
  Sender: FDA-Public Use
  Company Number: US-ROCHE-668637

PATIENT
  Sex: Female

DRUGS (19)
  1. RITUXAN [Suspect]
     Indication: NON-HODGKIN^S LYMPHOMA
     Dosage: 590 MG, UNK
     Route: 065
     Dates: start: 20070703, end: 20070813
  2. RITUXAN [Suspect]
     Dosage: 600 MG, UNK
     Route: 065
     Dates: start: 20071026, end: 20071228
  3. BEXXAR [Suspect]
     Indication: NON-HODGKIN^S LYMPHOMA
     Route: 065
  4. CYTOXAN [Concomitant]
     Indication: NON-HODGKIN^S LYMPHOMA
     Dosage: 1200 MG, UNK
     Route: 065
     Dates: start: 20071026, end: 20071228
  5. ADRIAMYCIN [Concomitant]
     Indication: NON-HODGKIN^S LYMPHOMA
     Dosage: 50 MG, UNK
     Route: 065
     Dates: start: 20071026, end: 20071026
  6. ADRIAMYCIN [Concomitant]
     Dosage: 40 MG, UNK
     Route: 065
     Dates: start: 20071116, end: 20071228
  7. VINCRISTINE [Concomitant]
     Indication: NON-HODGKIN^S LYMPHOMA
     Dosage: 2 MG, UNK
     Route: 065
     Dates: start: 20071026, end: 20071026
  8. VINCRISTINE [Concomitant]
     Dosage: 1.5 MG, UNK
     Route: 065
     Dates: start: 20071116, end: 20071228
  9. ZINECARD [Concomitant]
     Indication: PRODUCT USED FOR UNKNOWN INDICATION
     Dosage: 400 MG, UNK
     Route: 065
     Dates: start: 20071207, end: 20071228
  10. PEGFILGRASTIM [Concomitant]
     Indication: PRODUCT USED FOR UNKNOWN INDICATION
     Dosage: 6 UNK, UNK
     Route: 065
     Dates: start: 20071028, end: 20071209
  11. SYNTHROID [Concomitant]
     Indication: PRODUCT USED FOR UNKNOWN INDICATION
     Dosage: 0.725 MG, QD
     Route: 065
  12. PLAVIX [Concomitant]
     Indication: PRODUCT USED FOR UNKNOWN INDICATION
     Dosage: 75 MG, QD
     Route: 065
  13. PREDNISONE [Concomitant]
     Indication: PRODUCT USED FOR UNKNOWN INDICATION
     Dosage: 5 MG, QD
     Route: 065
  14. CARDIZEM [Concomitant]
     Indication: PRODUCT USED FOR UNKNOWN INDICATION
     Route: 065
  15. ASPIRIN [Concomitant]
     Indication: PRODUCT USED FOR UNKNOWN INDICATION
     Route: 065
  16. OXAZEPAM [Concomitant]
     Indication: PRODUCT USED FOR UNKNOWN INDICATION
     Route: 065
  17. PREMARIN [Concomitant]
     Indication: PRODUCT USED FOR UNKNOWN INDICATION
     Route: 065
  18. RELAFEN [Concomitant]
     Indication: PRODUCT USED FOR UNKNOWN INDICATION
     Route: 065
  19. ZANTAC [Concomitant]
     Indication: PRODUCT USED FOR UNKNOWN INDICATION
     Route: 065

REACTIONS (1)
  - Progressive multifocal leukoencephalopathy [Fatal]
